FAERS Safety Report 8622263-9 (Version None)
Quarter: 2012Q3

REPORT INFORMATION
  Report Type: 
  Country: None (occurrence: None)
  Receive Date: 20120827
  Receipt Date: 20120822
  Transmission Date: 20120928
  Serious: Yes (Other)
  Sender: FDA-Public Use
  Company Number: JP-009507513-2012SP027858

PATIENT

DRUGS (8)
  1. TELAVIC [Suspect]
     Indication: HEPATITIS C
     Dosage: 2250 MG, QD
     Route: 048
     Dates: start: 20120203, end: 20120426
  2. PEGINTERFERON ALFA-2B [Suspect]
     Dosage: 1.1 ?G/KG, QW
     Route: 058
     Dates: start: 20120406, end: 20120419
  3. PEGINTERFERON ALFA-2B [Suspect]
     Dosage: 1.4 ?G/KG, UNKNOWN
     Route: 058
     Dates: start: 20120420
  4. LOXONIN [Concomitant]
     Indication: PROPHYLAXIS
     Dosage: DOSE: 60 MG/DAY AS NEEDED; FORMULATION: TABLET
     Route: 048
     Dates: start: 20120203
  5. DICLOFENAC SODIUM [Concomitant]
     Indication: PROPHYLAXIS
     Dosage: DOSE: 50MG/DAY AS NEEDED; FORMULATION: SUP
     Route: 054
     Dates: start: 20120203
  6. PEGINTERFERON ALFA-2B [Suspect]
     Indication: HEPATITIS C
     Dosage: 1.5 ?G/KG, QW
     Route: 058
     Dates: start: 20120203
  7. REBETOL [Suspect]
     Indication: HEPATITIS C
     Dosage: 800 MG, QD
     Route: 048
     Dates: start: 20120203, end: 20120726
  8. PEGINTERFERON ALFA-2B [Suspect]
     Dosage: 1.4 ?G/KG, QW
     Route: 058
     Dates: end: 20120405

REACTIONS (1)
  - PLATELET COUNT DECREASED [None]
